FAERS Safety Report 21764467 (Version 1)
Quarter: 2022Q4

REPORT INFORMATION
  Report Type: Spontaneous
  Country: CA (occurrence: CA)
  Receive Date: 20221222
  Receipt Date: 20221222
  Transmission Date: 20230112
  Serious: Yes (Other)
  Sender: FDA-Public Use
  Company Number: CA-ADVANZ PHARMA-202212008722

PATIENT

DRUGS (5)
  1. HYDROXYCHLOROQUINE [Suspect]
     Active Substance: HYDROXYCHLOROQUINE
     Indication: Product used for unknown indication
     Dosage: UNK
     Route: 065
  2. RUXIENCE [Suspect]
     Active Substance: RITUXIMAB-PVVR
     Indication: Systemic lupus erythematosus
     Dosage: 1000 MG
     Route: 042
     Dates: start: 20220408
  3. RUXIENCE [Suspect]
     Active Substance: RITUXIMAB-PVVR
     Dosage: 2 G (RUXIENCE)
     Route: 042
     Dates: start: 202204
  4. RUXIENCE [Suspect]
     Active Substance: RITUXIMAB-PVVR
     Dosage: 1000 MG
     Route: 042
     Dates: start: 20220422
  5. TYLENOL [Concomitant]
     Active Substance: ACETAMINOPHEN
     Dosage: (COATED TYLENOL)

REACTIONS (9)
  - Diabetes mellitus [Unknown]
  - Retinopathy [Unknown]
  - Feeling abnormal [Unknown]
  - Blood glucose increased [Unknown]
  - Arthritis [Unknown]
  - Nausea [Recovered/Resolved]
  - Drug intolerance [Unknown]
  - Drug effective for unapproved indication [Unknown]
  - Off label use [Unknown]

NARRATIVE: CASE EVENT DATE: 20220408
